FAERS Safety Report 4886039-0 (Version None)
Quarter: 2006Q1

REPORT INFORMATION
  Report Type: 
  Country: None (occurrence: None)
  Receive Date: 20060118
  Receipt Date: 20060118
  Transmission Date: 20060701
  Serious: Yes (Hospitalization)
  Sender: FDA-Public Use
  Company Number: None

PATIENT
  Sex: Male
  Weight: 85.3 kg

DRUGS (2)
  1. TEMOZOLOMIDE [Suspect]
     Indication: GLIOBLASTOMA MULTIFORME
     Dosage: SEE IMAGE
     Route: 048
     Dates: start: 20060104
  2. IRINOTECAN HCL [Suspect]
     Dosage: SEE IMAGE
     Route: 042
     Dates: start: 20060104

REACTIONS (3)
  - CONVULSION [None]
  - SENSORY DISTURBANCE [None]
  - TREMOR [None]
